FAERS Safety Report 19792861 (Version 1)
Quarter: 2021Q3

REPORT INFORMATION
  Report Type: Spontaneous
  Country: JP (occurrence: JP)
  Receive Date: 20210906
  Receipt Date: 20210906
  Transmission Date: 20211014
  Serious: Yes (Other)
  Sender: FDA-Public Use
  Company Number: JP-PFIZER INC-202101091654

PATIENT
  Age: 36 Year
  Sex: Female

DRUGS (2)
  1. TAMOXIFEN [Suspect]
     Active Substance: TAMOXIFEN
  2. DOCETAXEL. [Suspect]
     Active Substance: DOCETAXEL
     Route: 041

REACTIONS (6)
  - Procedural pain [Unknown]
  - Alopecia [Recovered/Resolved]
  - Hypoaesthesia [Unknown]
  - Physical deconditioning [Unknown]
  - Peripheral nerve injury [Unknown]
  - Vocal cord thickening [Unknown]
